FAERS Safety Report 21395302 (Version 2)
Quarter: 2022Q4

REPORT INFORMATION
  Report Type: Spontaneous
  Country: US (occurrence: US)
  Receive Date: 20220930
  Receipt Date: 20221103
  Transmission Date: 20230113
  Serious: Yes (Hospitalization)
  Sender: FDA-Public Use
  Company Number: US-ORG100016242-2022002880

PATIENT

DRUGS (1)
  1. EXPAREL [Suspect]
     Active Substance: BUPIVACAINE
     Indication: Postoperative analgesia
     Dosage: NOT PROVIDED

REACTIONS (6)
  - Hospitalisation [Unknown]
  - Emergency care [Unknown]
  - Swelling [Unknown]
  - Hypoaesthesia [Unknown]
  - Dyspnoea [Unknown]
  - Neck pain [Unknown]
